FAERS Safety Report 19389232 (Version 1)
Quarter: 2021Q2

REPORT INFORMATION
  Report Type: Spontaneous
  Country: IT (occurrence: IT)
  Receive Date: 20210608
  Receipt Date: 20210608
  Transmission Date: 20210717
  Serious: Yes (Hospitalization, Other)
  Sender: FDA-Public Use
  Company Number: IT-GLAXOSMITHKLINE-IT2021GSK121708

PATIENT
  Age: 21 Year
  Sex: Female

DRUGS (1)
  1. LAMOTRIGINE. [Suspect]
     Active Substance: LAMOTRIGINE
     Indication: AFFECTIVE DISORDER
     Dosage: 50 MG

REACTIONS (12)
  - Lip swelling [Recovering/Resolving]
  - Dissociation [Recovering/Resolving]
  - Skin reaction [Recovering/Resolving]
  - Lip disorder [Recovering/Resolving]
  - Oral mucosa erosion [Recovering/Resolving]
  - Rash erythematous [Recovering/Resolving]
  - Stevens-Johnson syndrome [Recovering/Resolving]
  - Dermatitis bullous [Recovering/Resolving]
  - Herpes simplex [Recovering/Resolving]
  - Oral disorder [Recovering/Resolving]
  - Conjunctivitis [Recovering/Resolving]
  - Swelling face [Recovering/Resolving]
